FAERS Safety Report 10012984 (Version 1)
Quarter: 2014Q1

REPORT INFORMATION
  Report Type: Spontaneous
  Country: US (occurrence: US)
  Receive Date: 20140314
  Receipt Date: 20140314
  Transmission Date: 20141002
  Serious: No
  Sender: FDA-Public Use
  Company Number: US-PFIZER INC-2014067781

PATIENT
  Age: 32 Year
  Sex: Female
  Weight: 45.35 kg

DRUGS (2)
  1. REVATIO [Suspect]
     Indication: PULMONARY HYPERTENSION
     Dosage: 100 MG, 3X/DAY
  2. OPSUMIT [Concomitant]
     Indication: PULMONARY HYPERTENSION
     Dosage: 10 MG, DAILY

REACTIONS (1)
  - Intentional drug misuse [Unknown]
